FAERS Safety Report 15567531 (Version 1)
Quarter: 2018Q4

REPORT INFORMATION
  Report Type: Report from Study
  Country: DE (occurrence: DE)
  Receive Date: 20181030
  Receipt Date: 20181030
  Transmission Date: 20190205
  Serious: Yes (Hospitalization, Other)
  Sender: FDA-Public Use
  Company Number: DE-MYLANLABS-2018M1080434

PATIENT
  Age: 41 Year
  Sex: Female

DRUGS (2)
  1. ABATACEPT [Suspect]
     Active Substance: ABATACEPT
     Indication: PRODUCT USED FOR UNKNOWN INDICATION
     Dosage: 125 MG, QW
     Route: 058
  2. METHOTREXATE. [Suspect]
     Active Substance: METHOTREXATE
     Indication: PRODUCT USED FOR UNKNOWN INDICATION
     Dosage: 20 MG, QW
     Route: 065

REACTIONS (9)
  - Knee operation [Recovered/Resolved]
  - Bursitis [Recovered/Resolved]
  - Medical device removal [Not Recovered/Not Resolved]
  - Abdominal pain lower [Unknown]
  - Osteoarthritis [Recovered/Resolved]
  - Von Willebrand^s disease [Unknown]
  - Ovarian cyst ruptured [Recovered/Resolved]
  - Bursal operation [Recovered/Resolved]
  - Sinusitis [Unknown]

NARRATIVE: CASE EVENT DATE: 201504
